FAERS Safety Report 10178023 (Version 1)
Quarter: 2014Q2

REPORT INFORMATION
  Report Type: Spontaneous
  Country: GB (occurrence: GB)
  Receive Date: 20140517
  Receipt Date: 20140517
  Transmission Date: 20141212
  Serious: Yes (Hospitalization)
  Sender: FDA-Public Use
  Company Number: GB-JNJFOC-20140506119

PATIENT
  Age: 8 Day
  Sex: Male
  Weight: .67 kg

DRUGS (1)
  1. IBUPROFEN [Suspect]
     Indication: PATENT DUCTUS ARTERIOSUS
     Dosage: DOSE: 10 (UNITS UNSPECIFIED)
     Route: 065
     Dates: start: 20140221, end: 20140222

REACTIONS (3)
  - Necrotising colitis [Recovered/Resolved]
  - Abdominal distension [Recovered/Resolved]
  - Intestinal perforation [Recovered/Resolved]
